FAERS Safety Report 4966616-9 (Version None)
Quarter: 2006Q2

REPORT INFORMATION
  Report Type: 
  Country: None (occurrence: None)
  Receive Date: 20060407
  Receipt Date: 20060331
  Transmission Date: 20061013
  Serious: Yes (Other)
  Sender: FDA-Public Use
  Company Number: FR-BOEHRINGER INGELHEIM PHARMACEUTICALS, INC.-2006-FF-00250FF

PATIENT
  Age: 44 Year
  Sex: Female
  Weight: 95 kg

DRUGS (1)
  1. MOBIC [Suspect]
     Indication: BACK PAIN
     Route: 030
     Dates: start: 20060221, end: 20060221

REACTIONS (3)
  - CHILLS [None]
  - HYPOCHROMIC ANAEMIA [None]
  - PHARYNGEAL OEDEMA [None]
